FAERS Safety Report 9878186 (Version 3)
Quarter: 2014Q1

REPORT INFORMATION
  Report Type: Report from Study
  Country: JP (occurrence: JP)
  Receive Date: 20140206
  Receipt Date: 20140228
  Transmission Date: 20141002
  Serious: Yes (Hospitalization)
  Sender: FDA-Public Use
  Company Number: JP-PFIZER INC-2014002623

PATIENT
  Age: 4 Month
  Sex: Female

DRUGS (1)
  1. REVATIO [Suspect]
     Indication: PULMONARY ARTERIAL HYPERTENSION
     Dosage: 4MG/DAY (3X/DAY)
     Route: 048
     Dates: start: 20111108

REACTIONS (1)
  - Respiratory syncytial virus bronchiolitis [Recovered/Resolved]
